APPROVED DRUG PRODUCT: RANITIDINE HYDROCHLORIDE
Active Ingredient: RANITIDINE HYDROCHLORIDE
Strength: EQ 15MG BASE/ML
Dosage Form/Route: SYRUP;ORAL
Application: A077476 | Product #001
Applicant: SUN PHARMA CANADA INC
Approved: Jun 13, 2011 | RLD: No | RS: No | Type: DISCN